FAERS Safety Report 15219924 (Version 2)
Quarter: 2018Q4

REPORT INFORMATION
  Report Type: Spontaneous
  Country: DE (occurrence: DE)
  Receive Date: 20180731
  Receipt Date: 20181106
  Transmission Date: 20190204
  Serious: Yes (Other)
  Sender: FDA-Public Use
  Company Number: DE-ALVOGEN-2018-ALVOGEN-096875

PATIENT
  Age: 28 Year
  Sex: Male

DRUGS (15)
  1. QUETIAPINE. [Suspect]
     Active Substance: QUETIAPINE
     Indication: MYOCLONUS
  2. VENLAFAXINE [Suspect]
     Active Substance: VENLAFAXINE HYDROCHLORIDE
     Indication: MYOCLONUS
  3. MIRTAZAPINE. [Suspect]
     Active Substance: MIRTAZAPINE
     Indication: MYOCLONUS
  4. BUPROPION. [Suspect]
     Active Substance: BUPROPION
     Indication: MYOCLONUS
  5. DULOXETINE. [Suspect]
     Active Substance: DULOXETINE
     Indication: MYOCLONUS
  6. ESCITALOPRAM [Suspect]
     Active Substance: ESCITALOPRAM OXALATE
     Indication: MYOCLONUS
  7. RISPERIDONE. [Suspect]
     Active Substance: RISPERIDONE
     Indication: MYOCLONUS
  8. PROMETHAZINE [Suspect]
     Active Substance: PROMETHAZINE\PROMETHAZINE HYDROCHLORIDE
     Indication: MYOCLONUS
  9. ZOPICLONE [Suspect]
     Active Substance: ZOPICLONE
     Indication: MYOCLONUS
  10. BIPERIDEN HYDROCHLORIDE [Suspect]
     Active Substance: BIPERIDEN HYDROCHLORIDE
     Indication: MYOCLONUS
  11. ARIPIPRAZOLE. [Suspect]
     Active Substance: ARIPIPRAZOLE
     Indication: MYOCLONUS
  12. OLANZAPINE. [Suspect]
     Active Substance: OLANZAPINE
     Indication: MYOCLONUS
  13. AMISULPRIDE [Suspect]
     Active Substance: AMISULPRIDE
     Indication: MYOCLONUS
  14. FLUOXETINE [Suspect]
     Active Substance: FLUOXETINE HYDROCHLORIDE
     Indication: MYOCLONUS
  15. CLOZAPINE. [Suspect]
     Active Substance: CLOZAPINE
     Indication: MYOCLONUS

REACTIONS (2)
  - Juvenile myoclonic epilepsy [Unknown]
  - Drug intolerance [Unknown]
